FAERS Safety Report 17395287 (Version 2)
Quarter: 2020Q1

REPORT INFORMATION
  Report Type: Other
  Country: IT (occurrence: IT)
  Receive Date: 20200210
  Receipt Date: 20200316
  Transmission Date: 20200409
  Serious: Yes (Other)
  Sender: FDA-Public Use
  Company Number: IT-CELLTRION INC.-2019IT027303

PATIENT

DRUGS (17)
  1. MABTHERA [Suspect]
     Active Substance: RITUXIMAB
     Indication: DIFFUSE LARGE B-CELL LYMPHOMA
     Dosage: FROM 05-APR-201 9 TO 10-MAY-201 9 SHE HAD HYPER CVAD ARM A- 2 CYCLES (RITUXIMAB, CYCLOPHOSPHAMIDE, C
     Route: 065
     Dates: start: 201804, end: 201806
  2. DEXAMETHASONE. [Suspect]
     Active Substance: DEXAMETHASONE
     Indication: DIFFUSE LARGE B-CELL LYMPHOMA
     Dosage: UNK
     Route: 065
     Dates: start: 201804, end: 201806
  3. VINCRISTINE [Suspect]
     Active Substance: VINCRISTINE
     Indication: DIFFUSE LARGE B-CELL LYMPHOMA
     Dosage: UNK
     Route: 065
     Dates: start: 201804, end: 201806
  4. MELFALAN [MELPHALAN] [Suspect]
     Active Substance: MELPHALAN
     Indication: PRODUCT USED FOR UNKNOWN INDICATION
     Dosage: UNK
     Route: 065
  5. CYCLOPHOSPHAMIDE. [Suspect]
     Active Substance: CYCLOPHOSPHAMIDE
     Indication: DIFFUSE LARGE B-CELL LYMPHOMA
     Dosage: UNK
     Route: 065
     Dates: start: 201804, end: 201806
  6. MABTHERA [Suspect]
     Active Substance: RITUXIMAB
     Dosage: UNK
     Route: 065
     Dates: start: 20180302, end: 20190322
  7. IFOSFAMIDE. [Suspect]
     Active Substance: IFOSFAMIDE
     Indication: DIFFUSE LARGE B-CELL LYMPHOMA
     Dosage: UNK
     Route: 065
     Dates: start: 20180302, end: 20190322
  8. ETOPOSIDE. [Suspect]
     Active Substance: ETOPOSIDE
     Indication: DIFFUSE LARGE B-CELL LYMPHOMA
     Dosage: UNK
     Route: 065
     Dates: start: 20180302, end: 20190322
  9. PIXANTRONE [Suspect]
     Active Substance: PIXANTRONE
     Indication: PRODUCT USED FOR UNKNOWN INDICATION
     Dosage: UNK
     Route: 065
  10. DOXORUBICIN [Suspect]
     Active Substance: DOXORUBICIN
     Indication: DIFFUSE LARGE B-CELL LYMPHOMA
     Dosage: UNK
     Route: 065
     Dates: start: 201804, end: 201806
  11. CYTARABINE. [Suspect]
     Active Substance: CYTARABINE
     Dosage: UNK
     Route: 065
     Dates: start: 20180302, end: 20190322
  12. CYTARABINE. [Suspect]
     Active Substance: CYTARABINE
     Indication: DIFFUSE LARGE B-CELL LYMPHOMA
     Dosage: UNK
     Route: 065
     Dates: start: 201804, end: 201806
  13. CISPLATIN. [Suspect]
     Active Substance: CISPLATIN
     Indication: DIFFUSE LARGE B-CELL LYMPHOMA
     Dosage: UNK
     Route: 065
     Dates: start: 201804, end: 201806
  14. TRUXIMA [Suspect]
     Active Substance: RITUXIMAB-ABBS
     Indication: DIFFUSE LARGE B-CELL LYMPHOMA
     Dosage: UNK
     Route: 065
     Dates: start: 20190420
  15. CYTARABINE. [Suspect]
     Active Substance: CYTARABINE
     Dosage: UNK
     Route: 065
     Dates: start: 201804, end: 201806
  16. CYTARABINE. [Suspect]
     Active Substance: CYTARABINE
     Dosage: UNK
     Route: 065
     Dates: start: 20180302, end: 20190322
  17. MELFALAN [MELPHALAN] [Suspect]
     Active Substance: MELPHALAN
     Dosage: I CYCLE
     Route: 065
     Dates: start: 20190531

REACTIONS (2)
  - White blood cell count abnormal [Unknown]
  - Toxicity to various agents [Unknown]

NARRATIVE: CASE EVENT DATE: 201803
